FAERS Safety Report 16212692 (Version 1)
Quarter: 2019Q2

REPORT INFORMATION
  Report Type: Spontaneous
  Country: US (occurrence: US)
  Receive Date: 20190418
  Receipt Date: 20190418
  Transmission Date: 20190711
  Serious: Yes (Other)
  Sender: FDA-Public Use
  Company Number: US-ASTELLAS-2018US013904

PATIENT
  Age: 87 Year
  Sex: Female

DRUGS (2)
  1. LEXISCAN [Suspect]
     Active Substance: REGADENOSON
     Indication: SYNCOPE
     Dosage: UNK UNK, OTHER (ONCE)
     Route: 065
     Dates: start: 20180316, end: 20180316
  2. LEXISCAN [Suspect]
     Active Substance: REGADENOSON
     Indication: MYOCARDIAL ISCHAEMIA

REACTIONS (5)
  - Extrasystoles [Recovered/Resolved]
  - Ventricular extrasystoles [Recovered/Resolved]
  - Incorrect product administration duration [Unknown]
  - Sinus arrest [Recovered/Resolved]
  - Dyspnoea [Recovered/Resolved]

NARRATIVE: CASE EVENT DATE: 20180316
